FAERS Safety Report 7972505-8 (Version None)
Quarter: 2011Q4

REPORT INFORMATION
  Report Type: 
  Country: None (occurrence: None)
  Receive Date: 20111122
  Receipt Date: 20110628
  Transmission Date: 20120403
  Serious: No
  Sender: FDA-Public Use
  Company Number: PHHY2011US39043

PATIENT
  Age: 52 Year
  Sex: Female
  Weight: 95 kg

DRUGS (5)
  1. VITAMIN E [Concomitant]
  2. TRAZODONE HCL [Concomitant]
  3. GILENYA [Suspect]
     Indication: MULTIPLE SCLEROSIS
     Dosage: 0.5 MG, QD, ORAL
     Route: 048
     Dates: start: 20110125
  4. SELENIUM (SELENIUM) [Concomitant]
  5. FAMPRIDINE (FAMPRIDINE) [Concomitant]

REACTIONS (2)
  - FATIGUE [None]
  - ALOPECIA [None]
